FAERS Safety Report 19048248 (Version 1)
Quarter: 2021Q1

REPORT INFORMATION
  Report Type: Spontaneous
  Country: US (occurrence: US)
  Receive Date: 20210324
  Receipt Date: 20210324
  Transmission Date: 20210420
  Serious: No
  Sender: FDA-Public Use
  Company Number: US-TEVA-2021-US-1889910

PATIENT

DRUGS (1)
  1. ALBUTEROL SULFATE HFA [Suspect]
     Active Substance: ALBUTEROL SULFATE
     Route: 065

REACTIONS (6)
  - Rash [Unknown]
  - Swelling [Unknown]
  - Urticaria [Unknown]
  - Paraesthesia [Unknown]
  - Erythema [Unknown]
  - Paraesthesia oral [Unknown]
